FAERS Safety Report 6089409-0 (Version None)
Quarter: 2009Q1

REPORT INFORMATION
  Report Type: 
  Country: None (occurrence: None)
  Receive Date: 20090224
  Receipt Date: 20090217
  Transmission Date: 20090719
  Serious: Yes (Hospitalization)
  Sender: FDA-Public Use
  Company Number: IT-ROCHE-615207

PATIENT
  Sex: Female

DRUGS (4)
  1. ROCEPHIN [Suspect]
     Indication: BRONCHOPNEUMONIA
     Route: 042
     Dates: start: 20090214, end: 20090216
  2. LASIX [Concomitant]
  3. EMAGEL [Concomitant]
  4. FLUIMUCIL [Concomitant]

REACTIONS (1)
  - HEPATITIS [None]
